FAERS Safety Report 8418625-5 (Version None)
Quarter: 2012Q2

REPORT INFORMATION
  Report Type: 
  Country: None (occurrence: None)
  Receive Date: 20120607
  Receipt Date: 20120529
  Transmission Date: 20120825
  Serious: Yes (Hospitalization, Other)
  Sender: FDA-Public Use
  Company Number: US-ASTRAZENECA-2012SE29536

PATIENT
  Age: 43 Year
  Sex: Male
  Weight: 111.1 kg

DRUGS (40)
  1. LAMICTAL [Concomitant]
  2. ACETAMINOPHEN [Concomitant]
     Route: 048
  3. PROPRANOLOL [Concomitant]
     Route: 048
  4. SEROQUEL [Suspect]
     Indication: NERVOUS SYSTEM DISORDER
     Route: 048
     Dates: start: 20110201
  5. SEROQUEL [Suspect]
     Route: 048
     Dates: start: 20120501
  6. SEROQUEL [Suspect]
     Route: 048
  7. ZOFRAN [Concomitant]
     Indication: NAUSEA
     Dosage: 4.6MG Q8 HOURS, PRN
     Route: 042
  8. NEXIUM [Concomitant]
     Route: 042
  9. SEROQUEL [Suspect]
     Indication: BIPOLAR DISORDER
     Route: 048
     Dates: start: 20110201
  10. SEROQUEL [Suspect]
     Dosage: 25 MG 1 TO 2, AT BED TIME
     Route: 048
  11. TIZANIDINE [Concomitant]
  12. WELLBUTRIN [Concomitant]
     Indication: DEPRESSION
     Route: 048
     Dates: start: 20070118
  13. ACETAMINOPHEN [Concomitant]
     Route: 048
  14. LOVASTATIN [Concomitant]
  15. ASPIRIN [Concomitant]
  16. SEROQUEL [Suspect]
     Route: 048
     Dates: start: 20120501
  17. SEROQUEL [Suspect]
     Route: 048
     Dates: start: 20070118
  18. SEROQUEL [Suspect]
     Dosage: 25 MG 1 TO 2, AT BED TIME
     Route: 048
  19. FIORICET [Concomitant]
     Indication: PAIN
     Dosage: Q 4 HOURS, PRN
     Route: 048
  20. CYCLOBENZAPRINE [Concomitant]
  21. OMEPRAZOLE [Concomitant]
  22. SEROQUEL [Suspect]
     Indication: DEPRESSION
     Route: 048
     Dates: start: 20110201
  23. ALLOPURINOL [Concomitant]
  24. SEROQUEL [Suspect]
     Route: 048
     Dates: start: 20120501
  25. SEROQUEL [Suspect]
     Route: 048
     Dates: start: 20120501
  26. SEROQUEL [Suspect]
     Route: 048
     Dates: start: 20070118
  27. LAMICTAL [Concomitant]
     Route: 048
  28. SEROQUEL [Suspect]
     Dosage: 25 MG 1 TO 2, AT BED TIME
     Route: 048
  29. AMBIEN [Concomitant]
  30. ALLOPURINOL [Concomitant]
     Route: 048
  31. PREDNISONE [Concomitant]
  32. LORAZEPAM [Concomitant]
  33. SEROQUEL [Suspect]
     Route: 048
     Dates: start: 20120501
  34. SEROQUEL [Suspect]
     Route: 048
     Dates: start: 20120501
  35. SEROQUEL [Suspect]
     Route: 048
     Dates: start: 20070118
  36. SEROQUEL [Suspect]
     Route: 048
  37. SEROQUEL [Suspect]
     Route: 048
  38. WELLBUTRIN [Concomitant]
     Route: 048
  39. LORAZEPAM [Concomitant]
  40. OMEPRAZOLE [Concomitant]

REACTIONS (22)
  - HERPES ZOSTER OPHTHALMIC [None]
  - DRUG DOSE OMISSION [None]
  - COGNITIVE DISORDER [None]
  - FALL [None]
  - SUBDURAL HAEMATOMA [None]
  - BRAIN COMPRESSION [None]
  - SINUSITIS [None]
  - INSOMNIA [None]
  - OFF LABEL USE [None]
  - THERAPEUTIC RESPONSE UNEXPECTED [None]
  - BRAIN INJURY [None]
  - SKULL FRACTURE [None]
  - AGITATION [None]
  - ALCOHOL POISONING [None]
  - BRAIN MIDLINE SHIFT [None]
  - ALCOHOL WITHDRAWAL SYNDROME [None]
  - EYE PAIN [None]
  - SKULL FRACTURED BASE [None]
  - HEADACHE [None]
  - SUBARACHNOID HAEMORRHAGE [None]
  - BRAIN CONTUSION [None]
  - SLEEP APNOEA SYNDROME [None]
